FAERS Safety Report 18176649 (Version 1)
Quarter: 2020Q3

REPORT INFORMATION
  Report Type: Report from Study
  Country: MX (occurrence: MX)
  Receive Date: 20200820
  Receipt Date: 20200820
  Transmission Date: 20201103
  Serious: Yes (Other)
  Sender: FDA-Public Use
  Company Number: NVSC2020MX229513

PATIENT
  Sex: Male
  Weight: 68 kg

DRUGS (1)
  1. EXFORGE [Suspect]
     Active Substance: AMLODIPINE BESYLATE\VALSARTAN
     Indication: HYPERTENSION
     Dosage: 1 DF (160/5 MG), QD
     Route: 048

REACTIONS (3)
  - Movement disorder [Unknown]
  - Speech disorder [Not Recovered/Not Resolved]
  - Cerebral infarction [Unknown]
